FAERS Safety Report 15933992 (Version 1)
Quarter: 2019Q1

REPORT INFORMATION
  Report Type: Spontaneous
  Country: CN (occurrence: CN)
  Receive Date: 20190207
  Receipt Date: 20190207
  Transmission Date: 20190417
  Serious: Yes (Other)
  Sender: FDA-Public Use
  Company Number: CN-FRESENIUS KABI-FK201901083

PATIENT
  Age: 52 Year
  Sex: Male

DRUGS (5)
  1. OMEGAVEN [Suspect]
     Active Substance: FISH OIL
     Indication: DRUG THERAPY
     Dosage: 100ML/QD
     Route: 041
     Dates: start: 20181204, end: 20181213
  2. GLYCEROL/LECITHIN/MEDIUM-CHAIN TRIGLYCERIDES/GLYCINE MAX SEED OIL [Suspect]
     Active Substance: GLYCERIN\LECITHIN\MEDIUM-CHAIN TRIGLYCERIDES\SOYBEAN OIL
     Indication: DRUG THERAPY
     Dosage: 250ML/QD
     Route: 041
     Dates: start: 20181204, end: 20181213
  3. POTASSIUM PHOSPHATE DIBASIC/POTASSIUM PHOSPHATE MONOBASIC [Concomitant]
     Active Substance: POTASSIUM PHOSPHATE, DIBASIC\POTASSIUM PHOSPHATE, MONOBASIC
     Indication: DRUG THERAPY
     Dosage: 4ML/QD
     Route: 041
     Dates: start: 20181204, end: 20181219
  4. GLYCEROL/FRUCTOSE [Concomitant]
     Indication: DRUG THERAPY
     Dosage: 250ML/QD
     Route: 041
     Dates: start: 20181204, end: 20181219
  5. GLUCOSE INJECTION [Concomitant]
     Active Substance: DEXTROSE
     Indication: DRUG THERAPY
     Dosage: 500ML/QD
     Route: 041
     Dates: start: 20181204, end: 20181219

REACTIONS (1)
  - Cholestasis [Recovering/Resolving]

NARRATIVE: CASE EVENT DATE: 20181207
